FAERS Safety Report 12857254 (Version 1)
Quarter: 2016Q4

REPORT INFORMATION
  Report Type: Report from Study
  Country: PL (occurrence: PL)
  Receive Date: 20161018
  Receipt Date: 20161018
  Transmission Date: 20170207
  Serious: Yes (Hospitalization)
  Sender: FDA-Public Use
  Company Number: PL-TEVA-703136ISR

PATIENT
  Age: 79 Year
  Sex: Male

DRUGS (8)
  1. LIPEGFILGRASTIM [Suspect]
     Active Substance: LIPEGFILGRASTIM
  2. RITUXIMAB [Suspect]
     Active Substance: RITUXIMAB
     Indication: CHEMOTHERAPY
     Route: 042
     Dates: start: 20151012, end: 20151012
  3. MESNUM [Concomitant]
     Indication: PROPHYLAXIS
     Route: 042
     Dates: start: 20151010, end: 20151010
  4. MYOCET [Suspect]
     Active Substance: DOXORUBICIN
     Indication: CHEMOTHERAPY
     Route: 042
     Dates: start: 20151012, end: 20151012
  5. ONDANSETRON [Concomitant]
     Active Substance: ONDANSETRON
     Indication: ANAEMIA
     Dosage: 16 MILLIGRAM DAILY;
     Route: 048
     Dates: start: 20151010, end: 20151011
  6. VINCRISTINE [Suspect]
     Active Substance: VINCRISTINE
     Indication: CHEMOTHERAPY
     Route: 042
     Dates: start: 20151012, end: 20151012
  7. CYCLOPHOSPHAMIDE. [Suspect]
     Active Substance: CYCLOPHOSPHAMIDE
     Indication: CHEMOTHERAPY
     Route: 042
     Dates: start: 20151012, end: 20151012
  8. PREDNISOLONE. [Concomitant]
     Active Substance: PREDNISOLONE
     Indication: CHEMOTHERAPY
     Route: 048
     Dates: start: 20151010, end: 20151014

REACTIONS (3)
  - Dyspnoea [Recovered/Resolved]
  - Atrial flutter [Recovered/Resolved]
  - Asthenia [Recovered/Resolved]

NARRATIVE: CASE EVENT DATE: 20151206
